FAERS Safety Report 10256063 (Version 2)
Quarter: 2014Q2

REPORT INFORMATION
  Report Type: Spontaneous
  Country: JP (occurrence: JP)
  Receive Date: 20140624
  Receipt Date: 20140624
  Transmission Date: 20141212
  Serious: Yes (Disabling)
  Sender: FDA-Public Use
  Company Number: JP-BAYER-2014-072071

PATIENT
  Age: 69 Year
  Sex: Male
  Weight: 108 kg

DRUGS (10)
  1. XARELTO [Suspect]
     Indication: ATRIAL FIBRILLATION
     Dosage: DAILY DOSE 15 MG
     Route: 048
     Dates: start: 201402, end: 20140422
  2. XARELTO [Interacting]
     Indication: CEREBROVASCULAR ACCIDENT PROPHYLAXIS
  3. BAYASPIRIN [Interacting]
     Dosage: DAILY DOSE 100 MG
     Route: 048
  4. GLIMEPIRIDE [Concomitant]
     Dosage: DAILY DOSE 1 MG
     Route: 048
     Dates: end: 20140422
  5. METFORMIN HYDROCHLORIDE [Concomitant]
     Dosage: DAILY DOSE 250 MG
     Route: 048
     Dates: end: 20140422
  6. MICARDIS [Concomitant]
     Dosage: DAILY DOSE 40 MG
     Route: 048
     Dates: end: 20140422
  7. FAMOTIDINE [Concomitant]
     Dosage: DAILY DOSE 40 MG
     Route: 048
     Dates: end: 20140422
  8. ATORVASTATIN [Concomitant]
     Dosage: DAILY DOSE 10 MG
     Route: 048
     Dates: end: 20140422
  9. MECOBALAMIN [Concomitant]
     Dosage: DAILY DOSE 1500 ?G
     Route: 048
     Dates: end: 20140422
  10. MAGMITT [Concomitant]
     Dosage: DAILY DOSE 1500 MG
     Route: 048
     Dates: end: 20140422

REACTIONS (4)
  - Cerebral haemorrhage [Not Recovered/Not Resolved]
  - Dyslalia [None]
  - Hemiplegia [None]
  - Drug interaction [None]
